FAERS Safety Report 6731089-2 (Version None)
Quarter: 2010Q2

REPORT INFORMATION
  Report Type: 
  Country: None (occurrence: None)
  Receive Date: 20100518
  Receipt Date: 20100507
  Transmission Date: 20101027
  Serious: Yes (Other)
  Sender: FDA-Public Use
  Company Number: US-SANOFI-AVENTIS-2010SA027461

PATIENT
  Age: 63 Year
  Sex: Female

DRUGS (14)
  1. PLAVIX [Suspect]
     Route: 048
     Dates: start: 20090701
  2. PLAVIX [Suspect]
     Indication: STENT PLACEMENT
     Route: 048
     Dates: start: 20090701
  3. PLAVIX [Suspect]
     Route: 048
     Dates: start: 20060401
  4. PLAVIX [Suspect]
     Route: 048
     Dates: start: 20060401
  5. ASPIRIN [Concomitant]
  6. PRAVACHOL [Concomitant]
  7. NIASPAN [Concomitant]
  8. PEPCID [Concomitant]
  9. KLONOPIN [Concomitant]
     Dosage: DOSE:0.75 UNIT(S)
  10. LEVOTHYROXINE SODIUM [Concomitant]
  11. METOPROLOL SUCCINATE [Concomitant]
  12. PROZAC [Concomitant]
  13. NEURONTIN [Concomitant]
  14. TRAZODONE HCL [Concomitant]

REACTIONS (2)
  - INTERNATIONAL NORMALISED RATIO FLUCTUATION [None]
  - THROMBOSIS IN DEVICE [None]
